FAERS Safety Report 6459154-8 (Version None)
Quarter: 2009Q4

REPORT INFORMATION
  Report Type: 
  Country: None (occurrence: None)
  Receive Date: 20091125
  Receipt Date: 20091125
  Transmission Date: 20100525
  Serious: No
  Sender: FDA-Public Use
  Company Number: None

PATIENT
  Age: 36 Year
  Sex: Male

DRUGS (2)
  1. TUBERSOL [Suspect]
     Indication: TUBERCULIN TEST
     Dosage: (0.1 ML), I.D.
     Dates: start: 20080930
  2. ENGERIX-B [Suspect]
     Indication: IMMUNISATION
     Dates: start: 20080923

REACTIONS (3)
  - HEADACHE [None]
  - PAIN IN EXTREMITY [None]
  - THROAT TIGHTNESS [None]
